FAERS Safety Report 10431022 (Version 1)
Quarter: 2014Q3

REPORT INFORMATION
  Report Type: Spontaneous
  Country: US (occurrence: US)
  Receive Date: 20140904
  Receipt Date: 20140904
  Transmission Date: 20150326
  Serious: No
  Sender: FDA-Public Use
  Company Number: US-PFIZER INC-2014242564

PATIENT
  Age: 66 Year
  Sex: Female
  Weight: 56.24 kg

DRUGS (2)
  1. AZITHROMYCIN [Suspect]
     Active Substance: AZITHROMYCIN ANHYDROUS
     Indication: GINGIVITIS
     Dosage: 500 MG, DAILY (THEN SUPPOSED TO REDUCE TO ONE 250MG TABLET DAILY ON THE NEXT DAY FOR FOUR DAYS)
     Dates: start: 20140828
  2. RESTASIS [Concomitant]
     Active Substance: CYCLOSPORINE
     Indication: DRY EYE
     Dosage: UNK

REACTIONS (10)
  - Blood pressure abnormal [Unknown]
  - Dysphagia [Recovered/Resolved]
  - Dyspnoea [Recovered/Resolved]
  - Dry mouth [Recovered/Resolved]
  - Dizziness [Recovered/Resolved]
  - Sensory disturbance [Unknown]
  - Anxiety [Recovered/Resolved]
  - Pharyngeal erythema [Recovered/Resolved]
  - Pharyngeal oedema [Recovered/Resolved]
  - Fatigue [Recovered/Resolved]

NARRATIVE: CASE EVENT DATE: 20140828
